FAERS Safety Report 6530109-8 (Version None)
Quarter: 2010Q1

REPORT INFORMATION
  Report Type: 
  Country: None (occurrence: None)
  Receive Date: 20100107
  Receipt Date: 20091228
  Transmission Date: 20100710
  Serious: Yes (Life-Threatening, Hospitalization, Other)
  Sender: FDA-Public Use
  Company Number: AT-PURDUE-DEU-2009-0005653

PATIENT
  Sex: Male

DRUGS (1)
  1. MORPHINE [Suspect]
     Indication: DRUG ABUSE

REACTIONS (9)
  - CARDIAC ARREST [None]
  - COMA [None]
  - DRUG ABUSE [None]
  - DYSPNOEA [None]
  - HYPOXIC ENCEPHALOPATHY [None]
  - INFECTION [None]
  - PNEUMONIA [None]
  - PNEUMONIA ASPIRATION [None]
  - POISONING [None]
